FAERS Safety Report 7222160-X (Version None)
Quarter: 2011Q1

REPORT INFORMATION
  Report Type: 
  Country: None (occurrence: None)
  Receive Date: 20110103
  Receipt Date: 20101221
  Transmission Date: 20110831
  Serious: Yes (Death, Other)
  Sender: FDA-Public Use
  Company Number: 2008-00423

PATIENT
  Age: 62 Year
  Sex: Male
  Weight: 38 kg

DRUGS (25)
  1. DEXAMETHASONE (DEXAMETHASONE) [Suspect]
     Indication: MULTIPLE MYELOMA
     Dosage: 20 MG, INTRAVENOUS
     Route: 042
     Dates: start: 20071019, end: 20071129
  2. ALLOPURINOL [Concomitant]
  3. ESPO (EPOETIN ALFA) [Concomitant]
  4. FUNGUARD (MICAFUNTIN SODIUM) [Concomitant]
  5. RED BLOOD CELLS [Concomitant]
  6. SLOW-K [Concomitant]
  7. HUMULIN R [Concomitant]
  8. BIASAN (MENTHOL, GENTIAN, ZINGIBER OFFICINALE, ZANTHOXYIUM CLAVA-HERCU [Concomitant]
  9. COTRIM [Concomitant]
  10. CALCIUM LACTATE (CALCIUM LACTATE) [Concomitant]
  11. POTASSIUM CHLORIDE [Concomitant]
  12. MS CONTIN [Suspect]
     Indication: PRODUCT USED FOR UNKNOWN INDICATION
     Dosage: ORAL
     Route: 048
  13. FAMOTIDINE [Concomitant]
  14. VIT K CAP [Concomitant]
  15. NAUZELIN (DOMPERIDONE) [Concomitant]
  16. ZOVIRAX [Concomitant]
  17. DIFLUCAN [Concomitant]
  18. KAYEXALATE [Concomitant]
  19. FIRSTCIN (CEFOZOPRAN HYDROCHLORIDE) [Concomitant]
  20. MEROPENEM [Concomitant]
  21. VELCADE [Suspect]
     Indication: MULTIPLE MYELOMA
     Dosage: 1.60 MG, INTRAVENOUS; 1.30 MG, INTRAVENOUS
     Route: 042
     Dates: start: 20071119, end: 20071126
  22. VELCADE [Suspect]
     Indication: MULTIPLE MYELOMA
     Dosage: 1.60 MG, INTRAVENOUS; 1.30 MG, INTRAVENOUS
     Route: 042
     Dates: start: 20071019, end: 20071029
  23. ALOSENN (TARAXACUM OFFICINALE, ACHILLEA, SENNA LEAF, RUBIA ROOT TINCTU [Concomitant]
  24. MORPHINE HYDROCHLORIDE (MORPHINE HYDROCHLORIDE) [Concomitant]
  25. LASIX [Concomitant]

REACTIONS (22)
  - BLOOD UREA INCREASED [None]
  - SEPSIS [None]
  - HAEMOGLOBIN DECREASED [None]
  - BLOOD POTASSIUM INCREASED [None]
  - BLOOD LACTATE DEHYDROGENASE INCREASED [None]
  - PROTEIN TOTAL DECREASED [None]
  - MULTIPLE MYELOMA [None]
  - CONSTIPATION [None]
  - WHITE BLOOD CELL COUNT DECREASED [None]
  - ASTHENIA [None]
  - CARDIO-RESPIRATORY ARREST [None]
  - ENTEROCOCCUS TEST POSITIVE [None]
  - DIARRHOEA [None]
  - ALANINE AMINOTRANSFERASE INCREASED [None]
  - BLOOD URIC ACID INCREASED [None]
  - NEOPLASM MALIGNANT [None]
  - BLOOD CREATININE INCREASED [None]
  - PLATELET COUNT DECREASED [None]
  - WHITE BLOOD CELL COUNT INCREASED [None]
  - NEUROPATHY PERIPHERAL [None]
  - HERPES ZOSTER [None]
  - BLOOD PRESSURE INCREASED [None]
